FAERS Safety Report 8356641-2 (Version None)
Quarter: 2012Q2

REPORT INFORMATION
  Report Type: 
  Country: None (occurrence: None)
  Receive Date: 20120514
  Receipt Date: 20120509
  Transmission Date: 20120825
  Serious: Yes (Hospitalization)
  Sender: FDA-Public Use
  Company Number: PHEH2012US009783

PATIENT
  Sex: Female

DRUGS (13)
  1. SYNTHROID [Concomitant]
     Dosage: 88 MG, QD
  2. LOSARTAN POTASSIUM [Concomitant]
     Dosage: 100 MG, DAILY
  3. MULTI-VITAMINS [Concomitant]
     Dosage: UNK UKN, DAILY
  4. VYTORIN [Concomitant]
     Dosage: 10-40 MG, QD
  5. AMLODIPINE BESYLATE [Concomitant]
     Dosage: 5 MG, DAILY
  6. LUTEIN [Concomitant]
     Dosage: 20 MG, DAILY
  7. CINNAMON [Concomitant]
     Dosage: 10 MG, QD
  8. BIOTIN [Concomitant]
     Dosage: UNK UKN, QD
  9. OMEPRAZOLE [Concomitant]
     Dosage: 20 MG, BID
  10. ASPIRIN [Concomitant]
     Dosage: 81 MG, QD
  11. CITRACAL [Concomitant]
     Dosage: UNK UKN, UNK
  12. RECLAST [Suspect]
     Dosage: UNK UKN, UNK
     Route: 042
     Dates: start: 20120313
  13. METOPROLOL TARTRATE [Concomitant]
     Dosage: 25 MG, QD

REACTIONS (2)
  - FALL [None]
  - UPPER LIMB FRACTURE [None]
